FAERS Safety Report 5525986-3 (Version None)
Quarter: 2007Q4

REPORT INFORMATION
  Report Type: 
  Country: None (occurrence: None)
  Receive Date: 20071126
  Receipt Date: 20071113
  Transmission Date: 20080405
  Serious: No
  Sender: FDA-Public Use
  Company Number: US-BOEHRINGER INGELHEIM PHARMACEUTICALS, INC.-2007-BP-24511BP

PATIENT
  Age: 59 Year
  Sex: Female

DRUGS (1)
  1. SPIRIVA [Suspect]
     Indication: DYSPNOEA
     Route: 055
     Dates: start: 20070401

REACTIONS (4)
  - BRONCHITIS [None]
  - DYSPNOEA [None]
  - LARYNGITIS [None]
  - NASOPHARYNGITIS [None]
